FAERS Safety Report 8506002-8 (Version None)
Quarter: 2012Q3

REPORT INFORMATION
  Report Type: 
  Country: None (occurrence: None)
  Receive Date: 20120712
  Receipt Date: 20120702
  Transmission Date: 20120928
  Serious: Yes (Hospitalization)
  Sender: FDA-Public Use
  Company Number: US-GLAXOSMITHKLINE-B0814113A

PATIENT
  Age: 46 Year
  Sex: Female
  Weight: 111.2 kg

DRUGS (16)
  1. BUPROPION HYDROCHLORIDE [Suspect]
     Indication: EX-TOBACCO USER
     Dosage: 150MG TWICE PER DAY
     Route: 048
     Dates: start: 20120109, end: 20120131
  2. ROBAXIN [Concomitant]
     Dates: start: 20100824
  3. FISH OIL [Concomitant]
     Dates: start: 20080101
  4. PERI-COLACE [Concomitant]
     Dates: start: 20120207
  5. VITAMIN B COMPLEX CAP [Concomitant]
     Dates: start: 20080101
  6. CALCIUM WITH VITAMIN D [Concomitant]
     Dates: start: 20080101
  7. ALBUTEROL [Concomitant]
     Dates: start: 19790101
  8. PROBIOTICS [Concomitant]
     Dates: start: 20110901
  9. KLONOPIN [Concomitant]
     Dates: start: 20080101
  10. CO-Q10 [Concomitant]
     Dates: start: 20111101
  11. GINSENG [Concomitant]
     Dates: start: 20111101
  12. ANUSOL HC [Concomitant]
     Dates: start: 20120207
  13. FLOVENT [Concomitant]
     Dates: start: 20111208
  14. GARLIC [Concomitant]
     Dates: start: 20111101
  15. TYLENOL W/ CODEINE NO. 3 [Concomitant]
  16. CIMETIDINE [Concomitant]
     Dates: start: 20060101

REACTIONS (1)
  - BIPOLAR I DISORDER [None]
